FAERS Safety Report 5707493-8 (Version None)
Quarter: 2008Q2

REPORT INFORMATION
  Report Type: 
  Country: None (occurrence: None)
  Receive Date: 20080416
  Receipt Date: 20080409
  Transmission Date: 20081010
  Serious: Yes (Hospitalization, Other)
  Sender: FDA-Public Use
  Company Number: US-PFIZER INC-2007017803

PATIENT
  Sex: Female
  Weight: 49.9 kg

DRUGS (4)
  1. DETROL LA [Suspect]
     Indication: BLADDER DISORDER
     Route: 048
  2. CENTRUM SILVER [Concomitant]
  3. TYLENOL (CAPLET) [Concomitant]
  4. CALTRATE + D [Concomitant]

REACTIONS (6)
  - DIZZINESS [None]
  - FALL [None]
  - JOINT INJURY [None]
  - LOSS OF CONSCIOUSNESS [None]
  - LUNG NEOPLASM MALIGNANT [None]
  - MEMORY IMPAIRMENT [None]
